FAERS Safety Report 7145084-5 (Version None)
Quarter: 2010Q4

REPORT INFORMATION
  Report Type: 
  Country: None (occurrence: None)
  Receive Date: 20101208
  Receipt Date: 20101126
  Transmission Date: 20110411
  Serious: Yes (Hospitalization)
  Sender: FDA-Public Use
  Company Number: PHHY2010CH80213

PATIENT
  Age: 57 Year
  Sex: Male

DRUGS (1)
  1. VOLTAREN [Suspect]
     Dosage: UNK
     Route: 048
     Dates: start: 20100101, end: 20100625

REACTIONS (6)
  - ANAEMIA [None]
  - ERYTHEMA [None]
  - GASTRIC ULCER [None]
  - GASTRIC VARICES [None]
  - GASTROINTESTINAL ENDOSCOPIC THERAPY [None]
  - HAEMOGLOBIN DECREASED [None]
